FAERS Safety Report 9057118 (Version 1)
Quarter: 2013Q1

REPORT INFORMATION
  Report Type: Report from Study
  Country: US (occurrence: US)
  Receive Date: 20130131
  Receipt Date: 20130131
  Transmission Date: 20140127
  Serious: No
  Sender: FDA-Public Use
  Company Number: US-ABBOTT-12P-163-0997835-00

PATIENT
  Sex: Female
  Weight: 90.8 kg

DRUGS (7)
  1. HUMIRA [Suspect]
     Indication: RHEUMATOID ARTHRITIS
     Route: 058
     Dates: start: 20120829
  2. AMLODIPINE [Concomitant]
     Indication: HYPERTENSION
  3. CITALOPRAM [Concomitant]
     Indication: DEPRESSION
  4. PRAVACHOL [Concomitant]
     Indication: BLOOD CHOLESTEROL INCREASED
  5. PREDNISONE [Concomitant]
     Indication: RHEUMATOID ARTHRITIS
  6. VICODIN [Concomitant]
     Indication: PAIN
  7. ZIAC [Concomitant]
     Indication: HYPERTENSION

REACTIONS (1)
  - Arthralgia [Not Recovered/Not Resolved]
